FAERS Safety Report 5069073-X (Version None)
Quarter: 2006Q3

REPORT INFORMATION
  Report Type: 
  Country: None (occurrence: None)
  Receive Date: 20060731
  Receipt Date: 20060719
  Transmission Date: 20061208
  Serious: Yes (Disabling, Other)
  Sender: FDA-Public Use
  Company Number: 2006090103

PATIENT
  Sex: Male
  Weight: 124.7392 kg

DRUGS (8)
  1. LYRICA [Suspect]
     Indication: NEUROPATHY
     Dosage: 75 MG (75 MG, 1 IN 1 D) ORAL
     Route: 048
     Dates: start: 20060601, end: 20060718
  2. METOPROLOL TARTRATE [Concomitant]
  3. GLYBURIDE [Concomitant]
  4. ZOLOFT [Concomitant]
  5. CARDIAC THERAPY [Concomitant]
  6. NAPROXEN [Concomitant]
  7. FUROSEMIDE [Concomitant]
  8. DIURETICS [Concomitant]

REACTIONS (7)
  - ABASIA [None]
  - DIARRHOEA [None]
  - DRUG INEFFECTIVE [None]
  - GENERALISED OEDEMA [None]
  - IMPAIRED DRIVING ABILITY [None]
  - MOVEMENT DISORDER [None]
  - URINARY INCONTINENCE [None]
